FAERS Safety Report 17242522 (Version 1)
Quarter: 2020Q1

REPORT INFORMATION
  Report Type: Spontaneous
  Country: US (occurrence: US)
  Receive Date: 20200106
  Receipt Date: 20200106
  Transmission Date: 20200409
  Serious: Yes (Hospitalization)
  Sender: FDA-Public Use
  Company Number: None

PATIENT
  Age: 12 Year
  Sex: Female

DRUGS (5)
  1. TRILEPTAL 150MG [Concomitant]
  2. DEPAKOTE [Concomitant]
     Active Substance: DIVALPROEX SODIUM
  3. EPIDIOLEX [Suspect]
     Active Substance: CANNABIDIOL
     Indication: LENNOX-GASTAUT SYNDROME
     Route: 048
     Dates: start: 20191108
  4. ONFI 2.5MG/ML SUSP [Concomitant]
  5. KEPPRA 100MG/ML SOLUTION [Concomitant]

REACTIONS (2)
  - Ovarian cyst ruptured [None]
  - Pain [None]

NARRATIVE: CASE EVENT DATE: 20191231
